FAERS Safety Report 12118418 (Version 5)
Quarter: 2016Q2

REPORT INFORMATION
  Report Type: Report from Study
  Country: CR (occurrence: CR)
  Receive Date: 20160226
  Receipt Date: 20160523
  Transmission Date: 20160815
  Serious: Yes (Other)
  Sender: FDA-Public Use
  Company Number: PHHY2015CR114112

PATIENT
  Age: 41 Year
  Sex: Female
  Weight: 60 kg

DRUGS (3)
  1. GILENYA [Suspect]
     Active Substance: FINGOLIMOD HYDROCHLORIDE
     Indication: PRODUCT USED FOR UNKNOWN INDICATION
     Dosage: 0.5 MG, QD
     Route: 048
     Dates: start: 20150916
  2. PROTON [Concomitant]
     Active Substance: OMEPRAZOLE
     Indication: GASTRITIS PROPHYLAXIS
     Dosage: UNK
     Route: 065
  3. TIZANIDINE. [Suspect]
     Active Substance: TIZANIDINE
     Indication: MUSCLE SPASMS
     Dosage: UNK
     Route: 065
     Dates: start: 2012

REACTIONS (21)
  - Optic neuritis [Unknown]
  - Pruritus [Recovered/Resolved]
  - Respiratory arrest [Unknown]
  - Somnambulism [Unknown]
  - Heart rate decreased [Unknown]
  - Dyspnoea [Unknown]
  - Pain in extremity [Unknown]
  - Chest pain [Not Recovered/Not Resolved]
  - Macular oedema [Unknown]
  - Somnolence [Unknown]
  - Rash [Recovered/Resolved]
  - Hypertension [Unknown]
  - Hypoaesthesia [Recovering/Resolving]
  - Feeling abnormal [Unknown]
  - Blood pressure decreased [Unknown]
  - Malaise [Recovering/Resolving]
  - Blindness transient [Recovering/Resolving]
  - Myelitis [Unknown]
  - Dizziness [Not Recovered/Not Resolved]
  - Movement disorder [Recovering/Resolving]
  - Tachycardia [Unknown]

NARRATIVE: CASE EVENT DATE: 20150916
